FAERS Safety Report 21327393 (Version 1)
Quarter: 2022Q3

REPORT INFORMATION
  Report Type: Spontaneous
  Country: JP (occurrence: JP)
  Receive Date: 20220913
  Receipt Date: 20220913
  Transmission Date: 20221027
  Serious: Yes (Other)
  Sender: FDA-Public Use
  Company Number: JP-MTPC-MTPC2021-0020514

PATIENT
  Age: 65 Year
  Sex: Female

DRUGS (31)
  1. REMICADE [Suspect]
     Active Substance: INFLIXIMAB
     Indication: Rheumatoid arthritis
     Dates: start: 2012, end: 2012
  2. REMICADE [Suspect]
     Active Substance: INFLIXIMAB
     Dosage: 300 MILLIGRAM, QD, DRUG START PERIOD:1016 DAYS AND DRUG LAST PERIOD 3 DAYS
     Dates: start: 20120822
  3. REMICADE [Suspect]
     Active Substance: INFLIXIMAB
     Dosage: 300 MILLIGRAM, QD?DRUG START PERIOD:1016 DAYS?DRUG LAST PERIOD:3 DAYS
  4. REMICADE [Suspect]
     Active Substance: INFLIXIMAB
     Dosage: 300 MILLIGRAM, QD?DRUG START PERIOD:1016 DAYS?DRUG LAST PERIOD:3 DAYS
     Dates: start: 20150706, end: 20150706
  5. METHOTREXATE [Suspect]
     Active Substance: METHOTREXATE
     Indication: Rheumatoid arthritis
     Dosage: 16 MILLIGRAM, 1/WEEK, DRUG START PERIOD:1819 (DAYS)
     Route: 048
     Dates: start: 20100611
  6. METHOTREXATE [Suspect]
     Active Substance: METHOTREXATE
     Dosage: 14 MILLIGRAM, 1/WEEK,  DRUG START PERIOD:1819 (DAYS)
     Route: 048
     Dates: start: 20150708
  7. METHOTREXATE [Suspect]
     Active Substance: METHOTREXATE
     Dosage: 6 MILLIGRAM, 1/WEEK,  DRUG START PERIOD:1819 (DAYS)
     Route: 048
  8. METHOTREXATE [Suspect]
     Active Substance: METHOTREXATE
     Dosage: 4 MILLIGRAM, 1/WEEK,  DRUG START PERIOD:1819 (DAYS)
     Route: 048
  9. METHOTREXATE [Suspect]
     Active Substance: METHOTREXATE
     Dosage: 5 MILLIGRAM, 1/WEEK,  DRUG START PERIOD:1819 (DAYS)
     Route: 048
  10. PROGRAF [Suspect]
     Active Substance: TACROLIMUS
     Indication: Rheumatoid arthritis
     Dosage: 3 MILLIGRAM, QD, DRUG START PERIOD:1381 (DAYS)
     Route: 048
     Dates: start: 20110823
  11. HALCION [Concomitant]
     Active Substance: TRIAZOLAM
     Indication: Insomnia
     Dosage: 0.25 DOSAGE FORM, QD
     Route: 048
     Dates: start: 20100406, end: 20180703
  12. AZULFIDINE EN-TABS [Concomitant]
     Active Substance: SULFASALAZINE
     Indication: Rheumatoid arthritis
     Dosage: 1 GRAM, QD
     Route: 048
     Dates: start: 20100426
  13. AZULFIDINE EN-TABS [Concomitant]
     Active Substance: SULFASALAZINE
     Dosage: 500 MILLIGRAM, BID
     Route: 048
  14. PREDNISOLONE [Concomitant]
     Active Substance: PREDNISOLONE
     Indication: Inflammation
     Dosage: 5 MILLIGRAM, QD
     Route: 048
     Dates: start: 20101021
  15. MIZORIBINE [Concomitant]
     Active Substance: MIZORIBINE
     Indication: Rheumatoid arthritis
     Dosage: 150 MILLIGRAM, QD
     Route: 048
     Dates: start: 20110217
  16. MIZORIBINE [Concomitant]
     Active Substance: MIZORIBINE
     Dosage: 150 MILLIGRAM, BID
     Route: 048
  17. SULFAMETHOXAZOLE\TRIMETHOPRIM [Concomitant]
     Active Substance: SULFAMETHOXAZOLE\TRIMETHOPRIM
     Indication: Prophylaxis
     Dosage: 1 DOSAGE FORM, 3/WEEK
     Route: 048
     Dates: start: 20110920, end: 20210713
  18. LANSOPRAZOLE [Concomitant]
     Active Substance: LANSOPRAZOLE
     Indication: Gastric ulcer
     Dosage: 15 MILLIGRAM, QD
     Route: 048
     Dates: start: 20120529, end: 20180605
  19. PITAVASTATIN CALCIUM [Concomitant]
     Active Substance: PITAVASTATIN CALCIUM
     Indication: Hyperlipidaemia
     Dosage: 1 MILLIGRAM, QD
     Route: 048
     Dates: start: 20140312
  20. OLUMIANT [Concomitant]
     Active Substance: BARICITINIB
     Indication: Product used for unknown indication
     Dosage: 2 MILLIGRAM, QD
     Route: 048
     Dates: start: 20210511, end: 20210608
  21. ALFACALCIDOL [Concomitant]
     Active Substance: ALFACALCIDOL
     Indication: Product used for unknown indication
     Dosage: 0.5 MICROGRAM, QD
     Route: 048
  22. CILNIDIPINE [Concomitant]
     Active Substance: CILNIDIPINE
     Indication: Product used for unknown indication
     Dosage: 1 DOSAGE FORM, QD
     Route: 048
  23. VONOPRAZAN FUMARATE [Concomitant]
     Active Substance: VONOPRAZAN FUMARATE
     Indication: Product used for unknown indication
     Dosage: 10 MILLIGRAM, QD
     Route: 048
  24. LUNESTA [Concomitant]
     Active Substance: ESZOPICLONE
     Indication: Product used for unknown indication
     Dosage: 2 MILLIGRAM, QD
     Route: 048
  25. MINODRONIC ACID [Concomitant]
     Active Substance: MINODRONIC ACID
     Indication: Product used for unknown indication
     Dosage: 50 MILLIGRAM, Q4WEEKS
     Route: 048
  26. ETANERCEPT [Concomitant]
     Active Substance: ETANERCEPT
     Indication: Product used for unknown indication
     Route: 065
  27. TOCILIZUMAB [Concomitant]
     Active Substance: TOCILIZUMAB
     Indication: Product used for unknown indication
     Route: 065
  28. TOCILIZUMAB [Concomitant]
     Active Substance: TOCILIZUMAB
     Route: 065
  29. BARICITINIB [Concomitant]
     Active Substance: BARICITINIB
     Indication: Product used for unknown indication
     Dosage: 2 MILLIGRAM, QD
     Route: 065
  30. FOLIC ACID [Concomitant]
     Active Substance: FOLIC ACID
     Indication: Prophylaxis
     Dosage: 5 MILLIGRAM, 1/ WEEK
     Route: 048
     Dates: start: 20110106
  31. URSO [Concomitant]
     Active Substance: URSODIOL
     Indication: Product used for unknown indication
     Dosage: 100 MG, TID
     Route: 048

REACTIONS (3)
  - Renal impairment [Recovered/Resolved]
  - Liver disorder [Recovering/Resolving]
  - Pain [Not Recovered/Not Resolved]

NARRATIVE: CASE EVENT DATE: 20100611
